FAERS Safety Report 10118060 (Version 1)
Quarter: 2014Q2

REPORT INFORMATION
  Report Type: Report from Study
  Country: US (occurrence: US)
  Receive Date: 20140425
  Receipt Date: 20140425
  Transmission Date: 20141212
  Serious: Yes (Hospitalization)
  Sender: FDA-Public Use
  Company Number: US-JNJFOC-20140416197

PATIENT
  Age: 67 Year
  Sex: Female
  Weight: 78.47 kg

DRUGS (23)
  1. REMICADE [Suspect]
     Indication: COLITIS ULCERATIVE
     Route: 042
     Dates: start: 20140315
  2. REMICADE [Suspect]
     Indication: COLITIS ULCERATIVE
     Route: 042
     Dates: start: 201404
  3. LISINOPRIL [Concomitant]
     Route: 048
  4. VYTORIN [Concomitant]
     Indication: BLOOD CHOLESTEROL
     Route: 048
  5. VYTORIN [Concomitant]
     Indication: BLOOD CHOLESTEROL
     Route: 048
  6. TRAZODONE [Concomitant]
     Indication: SLEEP DISORDER
     Route: 048
  7. ANTIVERT [Concomitant]
     Route: 048
  8. PEPCID [Concomitant]
     Route: 048
  9. REQUIP [Concomitant]
     Indication: RESTLESS LEGS SYNDROME
     Route: 048
  10. KLONOPIN [Concomitant]
     Route: 048
  11. LEVOXYL [Concomitant]
     Indication: THYROID DISORDER
     Route: 048
  12. ALLEGRA [Concomitant]
     Route: 048
  13. ALLEGRA [Concomitant]
     Route: 048
  14. TYLENOL [Concomitant]
     Route: 048
  15. NEURONTIN [Concomitant]
     Route: 048
  16. NEURONTIN [Concomitant]
     Route: 048
  17. ORENCIA [Concomitant]
     Route: 048
  18. BIOTIN [Concomitant]
     Route: 048
  19. FLONASE [Concomitant]
     Route: 045
  20. MULTIVITAMINS [Concomitant]
     Route: 048
  21. VITAMIN D [Concomitant]
     Route: 048
  22. VITAMIN C [Concomitant]
     Route: 048
  23. VITAMIN E [Concomitant]
     Route: 048

REACTIONS (7)
  - Swelling face [Recovered/Resolved]
  - Oedema peripheral [Recovered/Resolved]
  - Pollakiuria [Recovered/Resolved]
  - Vision blurred [Recovered/Resolved]
  - Pyrexia [Unknown]
  - Dyspnoea [Unknown]
  - Oropharyngeal pain [Unknown]
